FAERS Safety Report 7167620-5 (Version None)
Quarter: 2010Q4

REPORT INFORMATION
  Report Type: 
  Country: None (occurrence: None)
  Receive Date: 20101216
  Receipt Date: 20100525
  Transmission Date: 20110411
  Serious: No
  Sender: FDA-Public Use
  Company Number: A0861140A

PATIENT
  Age: 75 Year
  Sex: Male

DRUGS (1)
  1. COMMIT [Suspect]
     Dates: start: 20100518, end: 20100525

REACTIONS (2)
  - EXPIRED DRUG ADMINISTERED [None]
  - NICOTINE DEPENDENCE [None]
